FAERS Safety Report 17817753 (Version 1)
Quarter: 2020Q2

REPORT INFORMATION
  Report Type: Spontaneous
  Country: CA (occurrence: CA)
  Receive Date: 20200522
  Receipt Date: 20200522
  Transmission Date: 20200714
  Serious: Yes (Hospitalization, Other)
  Sender: FDA-Public Use
  Company Number: CA-TEVA-2020-CA-1238616

PATIENT
  Age: 7 Year
  Sex: Male
  Weight: 22 kg

DRUGS (8)
  1. DOXORUBICIN HYDROCHLORIDE. [Suspect]
     Active Substance: DOXORUBICIN HYDROCHLORIDE
     Indication: NEPHROBLASTOMA
     Route: 042
  2. ETOPOSIDE. [Suspect]
     Active Substance: ETOPOSIDE
     Indication: PRODUCT USED FOR UNKNOWN INDICATION
     Route: 042
  3. VINCRISTINE SULFATE. [Concomitant]
     Active Substance: VINCRISTINE SULFATE
  4. CARBOPLATIN. [Concomitant]
     Active Substance: CARBOPLATIN
  5. DINUTUXIMAB [Concomitant]
     Active Substance: DINUTUXIMAB
  6. CYCLOPHOSPHAMIDE. [Suspect]
     Active Substance: CYCLOPHOSPHAMIDE
     Indication: NEUROBLASTOMA
     Route: 042
  7. CISPLATIN. [Concomitant]
     Active Substance: CISPLATIN
  8. MELPHALAN. [Concomitant]
     Active Substance: MELPHALAN

REACTIONS (1)
  - Cardiotoxicity [Unknown]
